FAERS Safety Report 4998718-5 (Version None)
Quarter: 2006Q2

REPORT INFORMATION
  Report Type: 
  Country: None (occurrence: None)
  Receive Date: 20060510
  Receipt Date: 20060509
  Transmission Date: 20061013
  Serious: Yes (Life-Threatening)
  Sender: FDA-Public Use
  Company Number: AU-BOEHRINGER INGELHEIM PHARMACEUTICALS, INC.-2006-BP-05222AU

PATIENT
  Weight: 68 kg

DRUGS (3)
  1. SPIRIVA [Suspect]
     Indication: LUNG DISORDER
     Route: 055
     Dates: start: 20051109, end: 20051110
  2. VALIUM [Concomitant]
     Indication: ANXIETY DISORDER
  3. BENADRYL (DIPHENHYDRAMINE, AMMONIUM CHLORIDE, SODIUM CITRATE) [Concomitant]
     Indication: LUNG DISORDER
     Route: 048

REACTIONS (5)
  - DYSPHORIA [None]
  - EYE PAIN [None]
  - HEADACHE [None]
  - RASH [None]
  - TREMOR [None]
